FAERS Safety Report 15200106 (Version 2)
Quarter: 2018Q4

REPORT INFORMATION
  Report Type: Spontaneous
  Country: US (occurrence: US)
  Receive Date: 20180726
  Receipt Date: 20181210
  Transmission Date: 20190204
  Serious: No
  Sender: FDA-Public Use
  Company Number: US-BRISTOL-MYERS SQUIBB COMPANY-BMS-2018-068531

PATIENT
  Age: 70 Year
  Sex: Female

DRUGS (2)
  1. OPDIVO [Suspect]
     Active Substance: NIVOLUMAB
     Indication: PRODUCT USED FOR UNKNOWN INDICATION
     Dosage: 480 MG, Q4WK
     Route: 065
  2. OPDIVO [Suspect]
     Active Substance: NIVOLUMAB
     Indication: LUNG NEOPLASM MALIGNANT
     Dosage: 240 MG, Q2WK
     Route: 065

REACTIONS (2)
  - Pain [Recovering/Resolving]
  - Arthralgia [Recovering/Resolving]
